FAERS Safety Report 4399015-1 (Version None)
Quarter: 2004Q3

REPORT INFORMATION
  Report Type: 
  Country: None (occurrence: None)
  Receive Date: 20040712
  Receipt Date: 20040621
  Transmission Date: 20050211
  Serious: Yes (Hospitalization)
  Sender: FDA-Public Use
  Company Number: US97095782A

PATIENT
  Sex: Female

DRUGS (4)
  1. NPH ILETIN I (BEEF-PORK) [Suspect]
     Indication: DIABETES MELLITUS
     Dosage: 30 U DAY
  2. ILENTIN-BEEF/PORK REGULAR INSULIN (INSULIN, ANIMAL) [Suspect]
     Indication: DIABETES MELLITUS
     Dosage: 12 U DAY
  3. LANTUS [Concomitant]
  4. NOVOLOG [Concomitant]

REACTIONS (2)
  - DIABETES MELLITUS INADEQUATE CONTROL [None]
  - SHOCK HYPOGLYCAEMIC [None]
